FAERS Safety Report 10941691 (Version 2)
Quarter: 2015Q2

REPORT INFORMATION
  Report Type: Spontaneous
  Country: US (occurrence: US)
  Receive Date: 20150322
  Receipt Date: 20150524
  Transmission Date: 20150821
  Serious: No
  Sender: FDA-Public Use
  Company Number: US-JNJFOC-20140802145

PATIENT
  Sex: Male

DRUGS (2)
  1. TESTOSTERONE-5-ALPHA REDUCTASE INHIBITORS [Concomitant]
     Indication: BENIGN PROSTATIC HYPERPLASIA
  2. INVOKANA [Suspect]
     Active Substance: CANAGLIFLOZIN
     Indication: TYPE 2 DIABETES MELLITUS
     Route: 048

REACTIONS (1)
  - Prostatic specific antigen decreased [Unknown]
